FAERS Safety Report 18646809 (Version 1)
Quarter: 2020Q4

REPORT INFORMATION
  Report Type: Spontaneous
  Country: US (occurrence: US)
  Receive Date: 20201222
  Receipt Date: 20201222
  Transmission Date: 20210114
  Serious: No
  Sender: FDA-Public Use
  Company Number: US-TELIGENT, INC-20201100060

PATIENT

DRUGS (10)
  1. CLONAZEPAM. [Concomitant]
     Active Substance: CLONAZEPAM
  2. ZOFRAN [Concomitant]
     Active Substance: ONDANSETRON HYDROCHLORIDE
  3. ZANTAC [Suspect]
     Active Substance: RANITIDINE HYDROCHLORIDE
     Dosage: UNK
     Dates: start: 2012, end: 2018
  4. OXYCODONE [Concomitant]
     Active Substance: OXYCODONE
  5. RANITIDINE. [Concomitant]
     Active Substance: RANITIDINE
     Dosage: ONCE A DAY
  6. TOPAMAX [Concomitant]
     Active Substance: TOPIRAMATE
  7. GABAPENTIN. [Concomitant]
     Active Substance: GABAPENTIN
     Indication: PAIN
  8. TOPIRAMATE. [Concomitant]
     Active Substance: TOPIRAMATE
  9. CELEBREX [Concomitant]
     Active Substance: CELECOXIB
  10. NEURONTIN [Concomitant]
     Active Substance: GABAPENTIN

REACTIONS (1)
  - Tooth loss [Unknown]
